FAERS Safety Report 5589700-8 (Version None)
Quarter: 2008Q1

REPORT INFORMATION
  Report Type: 
  Country: None (occurrence: None)
  Receive Date: 20080114
  Receipt Date: 20080110
  Transmission Date: 20080703
  Serious: Yes (Hospitalization)
  Sender: FDA-Public Use
  Company Number: B0497101A

PATIENT
  Age: 62 Year
  Sex: Male
  Weight: 70.5 kg

DRUGS (3)
  1. ROSIGLITAZONE [Suspect]
     Dates: start: 20020221
  2. METFORMIN HCL [Suspect]
     Dates: start: 20050628
  3. DIAPREL [Concomitant]
     Dosage: 320MG PER DAY
     Dates: start: 20010910

REACTIONS (7)
  - ACUTE MYOCARDIAL INFARCTION [None]
  - HYPERBILIRUBINAEMIA [None]
  - HYPERGLYCAEMIA [None]
  - HYPERTRIGLYCERIDAEMIA [None]
  - MUSCULOSKELETAL CHEST PAIN [None]
  - RESPIRATORY DISORDER [None]
  - VOMITING [None]
